FAERS Safety Report 6415088-6 (Version None)
Quarter: 2009Q4

REPORT INFORMATION
  Report Type: 
  Country: None (occurrence: None)
  Receive Date: 20091022
  Receipt Date: 20091013
  Transmission Date: 20100525
  Serious: Yes (Hospitalization)
  Sender: FDA-Public Use
  Company Number: ADR43022009

PATIENT
  Age: 61 Year
  Sex: Male

DRUGS (7)
  1. CITALOPRAM HYDROBROMIDE [Suspect]
     Indication: SCHIZOPHRENIA
     Dosage: ORAL
     Route: 048
  2. CLOZARIL [Concomitant]
  3. DIAZEPAM [Concomitant]
  4. VALPROATE SODIUM [Concomitant]
  5. ASPIRIN [Concomitant]
  6. METFORMIN [Concomitant]
  7. SIMVASTATIN [Concomitant]

REACTIONS (3)
  - CONFUSIONAL STATE [None]
  - CSF TEST ABNORMAL [None]
  - OVERDOSE [None]
